FAERS Safety Report 12769759 (Version 1)
Quarter: 2016Q3

REPORT INFORMATION
  Report Type: Spontaneous
  Country: US (occurrence: US)
  Receive Date: 20160922
  Receipt Date: 20160922
  Transmission Date: 20161109
  Serious: No
  Sender: FDA-Public Use
  Company Number: US-AMGEN-USASP2016124650

PATIENT
  Age: 50 Year
  Sex: Female

DRUGS (1)
  1. ENBREL [Suspect]
     Active Substance: ETANERCEPT
     Indication: ARTHRITIS
     Dosage: 50 MG, QWK ON TUESDAYS
     Route: 065
     Dates: start: 201607

REACTIONS (4)
  - Injection site pain [Unknown]
  - Joint effusion [Unknown]
  - Underdose [Unknown]
  - Incorrect product storage [Unknown]

NARRATIVE: CASE EVENT DATE: 2016
